FAERS Safety Report 7596266-X (Version None)
Quarter: 2011Q3

REPORT INFORMATION
  Report Type: 
  Country: None (occurrence: None)
  Receive Date: 20110707
  Receipt Date: 20110628
  Transmission Date: 20111222
  Serious: Yes (Other)
  Sender: FDA-Public Use
  Company Number: CA-GILEAD-2011-0038755

PATIENT
  Sex: Male

DRUGS (6)
  1. MULTI-VITAMIN [Concomitant]
  2. SELENIUM [Concomitant]
  3. ATRIPLA [Suspect]
     Indication: HIV INFECTION
     Route: 048
     Dates: start: 20110401, end: 20110412
  4. ZANTAC [Concomitant]
     Indication: RASH
  5. BENADRYL [Concomitant]
     Indication: RASH
  6. IMOVANE [Concomitant]
     Dates: start: 20110401

REACTIONS (1)
  - HYPERSENSITIVITY [None]
